FAERS Safety Report 9255896 (Version 2)
Quarter: 2013Q2

REPORT INFORMATION
  Report Type: Spontaneous
  Country: US (occurrence: US)
  Receive Date: 20130425
  Receipt Date: 20130628
  Transmission Date: 20140414
  Serious: Yes (Death)
  Sender: FDA-Public Use
  Company Number: US-GILEAD-2013-0074103

PATIENT
  Age: 69 Year
  Sex: 0

DRUGS (7)
  1. LETAIRIS [Suspect]
     Indication: PULMONARY ARTERIAL HYPERTENSION
     Dosage: 5 MG, QD
     Route: 048
     Dates: start: 20130205, end: 20130310
  2. METOPROLOL [Concomitant]
     Dosage: 25 DF, UNK
     Dates: start: 20120814
  3. NORVASC [Concomitant]
     Dosage: 10 DF, UNK
     Dates: start: 20120814
  4. OXYCODONE [Concomitant]
  5. ADCIRCA [Concomitant]
     Dosage: 40 DF, UNK
  6. AMIODARONE [Concomitant]
     Dosage: 200 DF, UNK
  7. PREDNISONE [Concomitant]
     Dosage: 40 DF, UNK
     Dates: start: 20120814

REACTIONS (3)
  - Septic shock [Fatal]
  - Staphylococcal infection [Fatal]
  - Cardiac disorder [Fatal]
